FAERS Safety Report 5925241-3 (Version None)
Quarter: 2008Q3

REPORT INFORMATION
  Report Type: 
  Country: None (occurrence: None)
  Receive Date: 20080909
  Receipt Date: 20070905
  Transmission Date: 20090109
  Serious: Yes (Death)
  Sender: FDA-Public Use
  Company Number: 163-20785-07090200

PATIENT
  Age: 75 Year
  Sex: Female

DRUGS (1)
  1. THALOMID [Suspect]
     Indication: MALIGNANT MELANOMA
     Dosage: 100 MG, QD, ORAL
     Route: 048
     Dates: start: 20070601

REACTIONS (1)
  - MALIGNANT MELANOMA [None]
